FAERS Safety Report 6601535-3 (Version None)
Quarter: 2010Q1

REPORT INFORMATION
  Report Type: 
  Country: None (occurrence: None)
  Receive Date: 20100225
  Receipt Date: 20100216
  Transmission Date: 20100710
  Serious: Yes (Hospitalization)
  Sender: FDA-Public Use
  Company Number: GR-ROCHE-624790

PATIENT
  Sex: Female
  Weight: 67.5 kg

DRUGS (9)
  1. TOCILIZUMAB [Suspect]
     Indication: RHEUMATOID ARTHRITIS
     Dosage: FORM INFUSION
     Route: 042
     Dates: start: 20090323
  2. TOCILIZUMAB [Suspect]
     Route: 042
     Dates: start: 20090619
  3. METHOTREXATE [Suspect]
     Indication: DRUG USE FOR UNKNOWN INDICATION
     Route: 065
     Dates: start: 20010129
  4. METHOTREXATE [Suspect]
     Route: 065
     Dates: start: 20090331
  5. FILICINE [Concomitant]
     Dates: start: 20030101
  6. DAFLON [Concomitant]
     Dosage: TDD: 900 MG/UH
     Dates: start: 20030101
  7. IDEOS [Concomitant]
     Dates: start: 20090518
  8. NORGESIC [Concomitant]
     Dates: start: 20090515, end: 20090710
  9. DONA [Concomitant]
     Dosage: DRUG NAME: DONARO +
     Dates: start: 20090518

REACTIONS (2)
  - DIARRHOEA [None]
  - PYREXIA [None]
